FAERS Safety Report 8243718-5 (Version None)
Quarter: 2012Q1

REPORT INFORMATION
  Report Type: 
  Country: None (occurrence: None)
  Receive Date: 20120329
  Receipt Date: 20110701
  Transmission Date: 20120608
  Serious: No
  Sender: FDA-Public Use
  Company Number: US-MYLANLABS-2011S1007703

PATIENT
  Age: 71 Year
  Sex: Female
  Weight: 54.43 kg

DRUGS (40)
  1. CLONAZEPAM [Concomitant]
     Indication: INSOMNIA
  2. OXYCODONE HCL [Concomitant]
     Indication: PAIN
     Dosage: AVERAGE OF TWO PER DAY
  3. MULTI-VITAMIN [Concomitant]
     Indication: ANTIOXIDANT THERAPY
     Dosage: SPECTRO - 83MG 42MG, 65IU
  4. CALCIUM MAGNESIUM CITRATE [Concomitant]
     Indication: PROPHYLAXIS
  5. EVISTA [Concomitant]
     Indication: BONE DENSITY DECREASED
  6. COQ10 [Concomitant]
     Indication: ARTERIOSCLEROSIS
  7. RESVERATROL [Concomitant]
     Indication: ANTIOXIDANT THERAPY
  8. ADVAIR DISKUS 100/50 [Concomitant]
     Dosage: 250/50
     Route: 055
  9. QUERCETIN [Concomitant]
     Indication: ANTIOXIDANT THERAPY
  10. HERBAL LIVER FORM [Concomitant]
     Indication: PROPHYLAXIS
     Dosage: ^LIVER CARE^
  11. CITRACAL /01606701/ [Concomitant]
     Indication: PROPHYLAXIS
  12. EMSAM [Suspect]
     Indication: DEPRESSION
     Dosage: CHANGED QDAY
     Route: 062
     Dates: start: 20110407, end: 20110408
  13. LIPITOR [Concomitant]
     Indication: BLOOD CHOLESTEROL INCREASED
  14. INTAL [Concomitant]
     Indication: BRONCHOSPASM
     Dosage: FOR TREATMENT OF ASTHMA OR BRONCHOSPASM OR PREVENTION OF ASTHMA OR BRONCHOSPASM BEFORE VIGOROUS EXER
     Route: 055
  15. ASTAXANTHIN [Concomitant]
     Indication: ANTIOXIDANT THERAPY
  16. CALCIUM CARBONATE [Concomitant]
     Indication: PROPHYLAXIS
  17. VITAMIN D [Concomitant]
     Indication: PROPHYLAXIS
  18. COLLAGEN BOVINE [Concomitant]
     Indication: PROPHYLAXIS
  19. MAGNESIUM SULFATE [Concomitant]
     Indication: PROPHYLAXIS
  20. GABAPENTIN [Concomitant]
     Indication: PAIN
  21. SINGULAIR [Concomitant]
     Indication: ASTHMA
  22. NEURONTIN [Concomitant]
     Indication: NECK PAIN
  23. VITAMIN [Concomitant]
     Indication: ARTHRITIS
     Dosage: GLUCO-PRO 900
  24. MAGNESIUM [Concomitant]
     Indication: PROPHYLAXIS
  25. DIGESTIVE AID [Concomitant]
     Indication: PROPHYLAXIS
     Dosage: ^MULTIDOLPHILUS^
  26. MIRAPEX [Concomitant]
  27. ZETIA [Concomitant]
     Indication: ARTERIOSCLEROSIS
  28. FISH OIL [Concomitant]
     Indication: ARTERIOSCLEROSIS
  29. D-MANNOSE [Concomitant]
     Indication: PROPHYLAXIS
     Dosage: WITH CRANACTIN
  30. MIRTAZAPINE [Concomitant]
  31. MIRTAZAPINE [Suspect]
  32. COZAAR [Concomitant]
     Indication: BLOOD PRESSURE INCREASED
     Dosage: TO PREVENT FURTHER DAMAGE TO THE KIDNEYS
  33. ALLOPURINOL [Concomitant]
     Indication: PROPHYLAXIS
  34. ASPIRIN [Concomitant]
  35. GREEN TEA /01578101/ [Concomitant]
     Indication: ANTIOXIDANT THERAPY
  36. EMSAM [Suspect]
     Indication: BIPOLAR DISORDER
     Dosage: CHANGED QDAY
     Route: 062
     Dates: start: 20110407, end: 20110408
  37. TYLENOL EXTENDED RELIEF [Concomitant]
     Indication: PAIN
     Dosage: AVERAGE OF TWO PER DAY
  38. MIRALAX /00754501/ [Concomitant]
     Indication: MEGACOLON
  39. VITAMINS, OTHER COMBINATIONS [Concomitant]
     Indication: ARTHRITIS
     Dosage: CHERRY FRUIT EXTRACT
  40. BILBERRY + LUTEIN [Concomitant]
     Indication: ANTIOXIDANT THERAPY

REACTIONS (14)
  - ECCHYMOSIS [None]
  - HALLUCINATION [None]
  - BRADYPHRENIA [None]
  - FEELING ABNORMAL [None]
  - CONFUSIONAL STATE [None]
  - MYALGIA [None]
  - SLOW RESPONSE TO STIMULI [None]
  - MOVEMENT DISORDER [None]
  - INSOMNIA [None]
  - NON-CARDIAC CHEST PAIN [None]
  - SOMNOLENCE [None]
  - COGNITIVE DISORDER [None]
  - OBSESSIVE THOUGHTS [None]
  - SPEECH DISORDER [None]
